FAERS Safety Report 13174047 (Version 3)
Quarter: 2018Q1

REPORT INFORMATION
  Report Type: Spontaneous
  Country: US (occurrence: US)
  Receive Date: 20170201
  Receipt Date: 20180104
  Transmission Date: 20180508
  Serious: No
  Sender: FDA-Public Use
  Company Number: US-TEVA-731038ACC

PATIENT
  Age: 46 Year
  Sex: Female

DRUGS (111)
  1. NYSTOP [Concomitant]
     Active Substance: NYSTATIN
  2. AMITRIPTYLIN [Concomitant]
     Active Substance: AMITRIPTYLINE
  3. PROPRANOLOL [Concomitant]
     Active Substance: PROPRANOLOL HYDROCHLORIDE
  4. MIRALAX [Concomitant]
     Active Substance: POLYETHYLENE GLYCOL 3350
  5. ALPRAZOLAM. [Concomitant]
     Active Substance: ALPRAZOLAM
     Dates: start: 20170501, end: 20170511
  6. GLUCOSAMINE [Concomitant]
     Active Substance: GLUCOSAMINE
     Dates: start: 20160527
  7. UNISOM SLEEPTABS [Concomitant]
     Active Substance: DOXYLAMINE SUCCINATE
     Dates: start: 20160527
  8. VITAMIN C [Concomitant]
     Active Substance: ASCORBIC ACID
     Dates: start: 20160527
  9. LOSARTAN POTASSIUM. [Concomitant]
     Active Substance: LOSARTAN POTASSIUM
     Dates: start: 20160906, end: 20170305
  10. MORPHINE SULFATE. [Concomitant]
     Active Substance: MORPHINE SULFATE
     Dates: start: 20170216, end: 20170417
  11. GABAPENTIN. [Concomitant]
     Active Substance: GABAPENTIN
     Dates: start: 20170301, end: 20171022
  12. ESCITALOPRAM [Concomitant]
     Active Substance: ESCITALOPRAM OXALATE
     Dates: start: 20161209, end: 20170207
  13. ESCITALOPRAM [Concomitant]
     Active Substance: ESCITALOPRAM OXALATE
     Dates: start: 20170515, end: 20171111
  14. PREDNISONE. [Concomitant]
     Active Substance: PREDNISONE
     Dates: start: 20170724, end: 20170922
  15. NORTRIPTYLINE [Concomitant]
     Active Substance: NORTRIPTYLINE
     Dates: start: 20161207, end: 20170831
  16. MORPHINE [Concomitant]
     Active Substance: MORPHINE
     Dates: start: 20170323, end: 20170522
  17. MORPHINE [Concomitant]
     Active Substance: MORPHINE
     Dates: start: 20170519, end: 20170718
  18. MORPHINE [Concomitant]
     Active Substance: MORPHINE
     Dates: start: 20170619, end: 20170818
  19. CLONAZEPAM. [Concomitant]
     Active Substance: CLONAZEPAM
     Dates: start: 20171108
  20. TRIAM/HCTZ [Concomitant]
     Active Substance: HYDROCHLOROTHIAZIDE\TRIAMTERENE
  21. FLUOXETINE [Concomitant]
     Active Substance: FLUOXETINE HYDROCHLORIDE
  22. MORPHINE SULFATE. [Concomitant]
     Active Substance: MORPHINE SULFATE
     Dates: start: 20170109, end: 20170310
  23. ESCITALOPRAM [Concomitant]
     Active Substance: ESCITALOPRAM OXALATE
     Dates: start: 20171108
  24. PREDNISONE. [Concomitant]
     Active Substance: PREDNISONE
     Dates: start: 20170920, end: 20171119
  25. MUPIROCIN. [Concomitant]
     Active Substance: MUPIROCIN
     Dates: start: 20170316, end: 20170501
  26. MUPIROCIN. [Concomitant]
     Active Substance: MUPIROCIN
     Dates: start: 20170507, end: 20170527
  27. OXYCODONE/APAP [Concomitant]
     Active Substance: ACETAMINOPHEN\OXYCODONE HYDROCHLORIDE
     Dosage: 7.5-325
     Dates: start: 20170415, end: 20170604
  28. OXYCODONE/APAP [Concomitant]
     Active Substance: ACETAMINOPHEN\OXYCODONE HYDROCHLORIDE
     Dosage: 7.5-325
     Dates: start: 20170519, end: 20170702
  29. METHYLPREDNISOLONE. [Concomitant]
     Active Substance: METHYLPREDNISOLONE
     Dates: start: 20170118, end: 20170211
  30. METHYLPREDNISOLONE. [Concomitant]
     Active Substance: METHYLPREDNISOLONE
     Dates: start: 20170724, end: 20170814
  31. MORPHINE [Concomitant]
     Active Substance: MORPHINE
     Dates: start: 20170323, end: 20170522
  32. MORPHINE [Concomitant]
     Active Substance: MORPHINE
     Dates: start: 20170619, end: 20170818
  33. BACLOFEN. [Concomitant]
     Active Substance: BACLOFEN
  34. MECLIZINE [Concomitant]
     Active Substance: MECLIZINE HYDROCHLORIDE
  35. DULOXETINE. [Concomitant]
     Active Substance: DULOXETINE
  36. PROZAC [Concomitant]
     Active Substance: FLUOXETINE HYDROCHLORIDE
  37. MORPHINE SULFATE. [Concomitant]
     Active Substance: MORPHINE SULFATE
     Dates: start: 20160927
  38. MORPHINE SULFATE. [Concomitant]
     Active Substance: MORPHINE SULFATE
     Dates: start: 20161119, end: 20170120
  39. MORPHINE SULFATE. [Concomitant]
     Active Substance: MORPHINE SULFATE
     Dates: start: 20171108
  40. PREDNISONE. [Concomitant]
     Active Substance: PREDNISONE
     Dates: start: 20170915, end: 20171114
  41. OXYCODONE/APAP [Concomitant]
     Active Substance: ACETAMINOPHEN\OXYCODONE HYDROCHLORIDE
     Dosage: 7.5-325
     Dates: start: 20170915, end: 20171114
  42. METHYLPREDNISOLONE. [Concomitant]
     Active Substance: METHYLPREDNISOLONE
     Dates: start: 20170221, end: 20170719
  43. GENERLAC [Concomitant]
     Active Substance: LACTULOSE
     Dosage: DOSAGE FORM: SOLUTION 10GM/15
     Dates: start: 20170911, end: 20171109
  44. MORPHINE [Concomitant]
     Active Substance: MORPHINE
     Dates: start: 20170420, end: 20170620
  45. MORPHINE [Concomitant]
     Active Substance: MORPHINE
     Dates: start: 20170420, end: 20170620
  46. METAXOL [Concomitant]
     Dates: start: 20170428
  47. AMBIEN [Concomitant]
     Active Substance: ZOLPIDEM TARTRATE
     Dates: start: 20170530
  48. POLYETHYLENE GLYCOL [Concomitant]
     Active Substance: POLYETHYLENE GLYCOLS
  49. ALPRAZOLAM. [Concomitant]
     Active Substance: ALPRAZOLAM
     Dates: start: 20171102
  50. VITAMIN B COMPLEX W/C AND CYANOCOBALAMIN [Concomitant]
     Dates: start: 20160527
  51. LOSARTAN POTASSIUM. [Concomitant]
     Active Substance: LOSARTAN POTASSIUM
     Dates: start: 20161129, end: 20170528
  52. PERCOCET [Concomitant]
     Active Substance: ACETAMINOPHEN\OXYCODONE HYDROCHLORIDE
     Dosage: 7.5-325
     Dates: start: 20160927
  53. MORPHINE SULFATE. [Concomitant]
     Active Substance: MORPHINE SULFATE
     Dates: start: 20170915, end: 20171114
  54. MORPHINE SULFATE. [Concomitant]
     Active Substance: MORPHINE SULFATE
     Dates: start: 20171012, end: 20171211
  55. GABAPENTIN. [Concomitant]
     Active Substance: GABAPENTIN
     Dates: start: 20170324, end: 20170813
  56. PREDNISONE. [Concomitant]
     Active Substance: PREDNISONE
     Dates: start: 20170222, end: 20170423
  57. OXYCODONE [Concomitant]
     Active Substance: OXYCODONE
     Dosage: 7.5-325
     Dates: start: 20161115, end: 20161229
  58. CEPHALEXIN. [Concomitant]
     Active Substance: CEPHALEXIN
     Dates: start: 20161118, end: 20161208
  59. NORTRIPTYLINE [Concomitant]
     Active Substance: NORTRIPTYLINE
     Dates: start: 20170802, end: 20171129
  60. OXYCODONE/APAP [Concomitant]
     Active Substance: ACETAMINOPHEN\OXYCODONE HYDROCHLORIDE
     Dosage: 7.5-325
     Dates: start: 20170109, end: 20170222
  61. ZOLPIDEM [Concomitant]
     Active Substance: ZOLPIDEM\ZOLPIDEM TARTRATE
     Dates: start: 20170515, end: 20170828
  62. TURMERIC POW ROOT [Concomitant]
     Dates: start: 20170628
  63. COPAXONE [Suspect]
     Active Substance: GLATIRAMER ACETATE
     Indication: MULTIPLE SCLEROSIS
     Dosage: 17.1429 MILLIGRAM DAILY;
     Route: 058
     Dates: start: 20160712
  64. MORPHINE SULFATE. [Concomitant]
     Active Substance: MORPHINE SULFATE
     Dates: start: 20161119, end: 20170120
  65. ESCITALOPRAM [Concomitant]
     Active Substance: ESCITALOPRAM OXALATE
     Dates: start: 20161129, end: 20170528
  66. PREDNISONE. [Concomitant]
     Active Substance: PREDNISONE
     Dates: start: 20161108, end: 20170307
  67. OXYCODONE/APAP [Concomitant]
     Active Substance: ACETAMINOPHEN\OXYCODONE HYDROCHLORIDE
     Dosage: 7.5-325
     Dates: start: 20170323, end: 20170506
  68. TYLENOL [Concomitant]
     Active Substance: ACETAMINOPHEN
  69. PROPRANOLOL [Concomitant]
     Active Substance: PROPRANOLOL HYDROCHLORIDE
  70. ALPRAZOLAM. [Concomitant]
     Active Substance: ALPRAZOLAM
     Dates: start: 20170502, end: 20170820
  71. STOOL SOFTENER (DOCUSATE) [Concomitant]
     Active Substance: DOCUSATE
     Dates: start: 20160527
  72. MORPHINE SULFATE. [Concomitant]
     Active Substance: MORPHINE SULFATE
     Dates: start: 20170216, end: 20170417
  73. MORPHINE SULFATE. [Concomitant]
     Active Substance: MORPHINE SULFATE
     Dates: start: 20170915, end: 20171114
  74. GABAPENTIN. [Concomitant]
     Active Substance: GABAPENTIN
     Dates: start: 20170729, end: 20170927
  75. PREDNISONE. [Concomitant]
     Active Substance: PREDNISONE
     Dates: start: 20170530, end: 20170729
  76. PREDNISONE. [Concomitant]
     Active Substance: PREDNISONE
     Dates: start: 20171017
  77. CEPHALEXIN. [Concomitant]
     Active Substance: CEPHALEXIN
     Dates: start: 20171030, end: 20171119
  78. MUPIROCIN. [Concomitant]
     Active Substance: MUPIROCIN
     Dates: start: 20170121, end: 20170221
  79. MUPIROCIN. [Concomitant]
     Active Substance: MUPIROCIN
     Dates: start: 20170209, end: 20170324
  80. OXYCODONE/APAP [Concomitant]
     Active Substance: ACETAMINOPHEN\OXYCODONE HYDROCHLORIDE
     Dosage: 7.5-325
     Dates: start: 20170216, end: 20170401
  81. OXYCODONE/APAP [Concomitant]
     Active Substance: ACETAMINOPHEN\OXYCODONE HYDROCHLORIDE
     Dosage: 7.5-325
     Dates: start: 20170717, end: 20170830
  82. OXYCODONE/APAP [Concomitant]
     Active Substance: ACETAMINOPHEN\OXYCODONE HYDROCHLORIDE
     Dosage: 7.5-325
     Dates: start: 20171012
  83. MORPHINE [Concomitant]
     Active Substance: MORPHINE
     Dates: start: 20170519, end: 20170718
  84. MORPHINE [Concomitant]
     Active Substance: MORPHINE
     Dates: start: 20170717, end: 20170915
  85. MORPHINE [Concomitant]
     Active Substance: MORPHINE
     Dates: start: 20170717, end: 20170915
  86. ZOLPIDEM [Concomitant]
     Active Substance: ZOLPIDEM\ZOLPIDEM TARTRATE
     Dates: start: 20171108
  87. METAXALONE. [Concomitant]
     Active Substance: METAXALONE
     Dates: start: 20170911
  88. ALPRAZOLAM. [Concomitant]
     Active Substance: ALPRAZOLAM
     Dates: start: 20171014, end: 20171110
  89. MORPHINE SULFATE. [Concomitant]
     Active Substance: MORPHINE SULFATE
     Dates: start: 20170109, end: 20170310
  90. OMEPRAZOLE. [Concomitant]
     Active Substance: OMEPRAZOLE
     Dates: start: 20161014
  91. GABAPENTIN. [Concomitant]
     Active Substance: GABAPENTIN
     Dates: start: 20170918, end: 20171118
  92. MUPIROCIN. [Concomitant]
     Active Substance: MUPIROCIN
     Dates: start: 20161130, end: 20170119
  93. MUPIROCIN. [Concomitant]
     Active Substance: MUPIROCIN
     Dates: start: 20170421, end: 20170619
  94. OXYCODONE/APAP [Concomitant]
     Active Substance: ACETAMINOPHEN\OXYCODONE HYDROCHLORIDE
     Dosage: 7.5-325
     Dates: start: 20161216, end: 20170129
  95. OXYCODONE/APAP [Concomitant]
     Active Substance: ACETAMINOPHEN\OXYCODONE HYDROCHLORIDE
     Dosage: 7.5-325
     Dates: start: 20170619, end: 20170816
  96. OXYCODONE/APAP [Concomitant]
     Active Substance: ACETAMINOPHEN\OXYCODONE HYDROCHLORIDE
     Dosage: 7.5-325
     Dates: start: 20171108
  97. ZOLPIDEM [Concomitant]
     Active Substance: ZOLPIDEM\ZOLPIDEM TARTRATE
     Dates: start: 20171106
  98. MIRTAZAPINE. [Concomitant]
     Active Substance: MIRTAZAPINE
     Dates: start: 20171029
  99. CLONAZEPAM. [Concomitant]
     Active Substance: CLONAZEPAM
     Dates: start: 20171106
  100. OMEPRAZOLE. [Concomitant]
     Active Substance: OMEPRAZOLE
     Dates: start: 20161117, end: 20170403
  101. ADDERALL [Concomitant]
     Active Substance: AMPHETAMINE ASPARTATE\AMPHETAMINE SULFATE\DEXTROAMPHETAMINE SACCHARATE\DEXTROAMPHETAMINE SULFATE
  102. VITAMIN D3 [Concomitant]
     Active Substance: CHOLECALCIFEROL
     Dates: start: 20160527
  103. MORPHINE SULFATE. [Concomitant]
     Active Substance: MORPHINE SULFATE
     Dates: start: 20161024, end: 20161223
  104. MORPHINE SULFATE. [Concomitant]
     Active Substance: MORPHINE SULFATE
     Dates: start: 20161024, end: 20161223
  105. OMEPRAZOLE. [Concomitant]
     Active Substance: OMEPRAZOLE
     Dates: start: 20170915
  106. GABAPENTIN. [Concomitant]
     Active Substance: GABAPENTIN
     Dates: start: 20161106, end: 20170105
  107. ESCITALOPRAM [Concomitant]
     Active Substance: ESCITALOPRAM OXALATE
     Dates: start: 20161106, end: 20170105
  108. ESCITALOPRAM [Concomitant]
     Active Substance: ESCITALOPRAM OXALATE
     Dates: start: 20170221, end: 20170820
  109. CEPHALEXIN. [Concomitant]
     Active Substance: CEPHALEXIN
     Dates: start: 20171108, end: 20171114
  110. GENERLAC [Concomitant]
     Active Substance: LACTULOSE
     Dosage: DOSAGE FORM: SOLUTION 10GM/15
     Dates: start: 20170317, end: 20170927
  111. MIRTAZAPINE. [Concomitant]
     Active Substance: MIRTAZAPINE
     Dates: start: 20171030

REACTIONS (6)
  - Injection site bruising [Not Recovered/Not Resolved]
  - Injection site erythema [Not Recovered/Not Resolved]
  - Injection site pruritus [Not Recovered/Not Resolved]
  - Injection site mass [Not Recovered/Not Resolved]
  - Injection site pain [Not Recovered/Not Resolved]
  - Injection site reaction [Unknown]

NARRATIVE: CASE EVENT DATE: 20161118
